FAERS Safety Report 25623509 (Version 1)
Quarter: 2025Q3

REPORT INFORMATION
  Report Type: Spontaneous
  Country: US (occurrence: US)
  Receive Date: 20250730
  Receipt Date: 20250730
  Transmission Date: 20251021
  Serious: Yes (Death, Other)
  Sender: AMGEN
  Company Number: US-AMGEN-USASP2025144655

PATIENT

DRUGS (4)
  1. FILGRASTIM [Suspect]
     Active Substance: FILGRASTIM
     Indication: Prophylaxis
     Dosage: UNK, QD, STARTING 24 TO 72 HOURS
     Route: 058
  2. PEGFILGRASTIM [Suspect]
     Active Substance: PEGFILGRASTIM
     Indication: Prophylaxis
     Route: 058
  3. TOPOTECAN [Suspect]
     Active Substance: TOPOTECAN HYDROCHLORIDE
     Indication: Cervix carcinoma
     Dosage: 0.6 MILLIGRAM/SQ. METER, QD, ON DAYS 1 TO 5 OF EACH TREATMENT CYCLE
     Route: 040
  4. VELIPARIB [Suspect]
     Active Substance: VELIPARIB
     Indication: Cervix carcinoma
     Dosage: 10 MILLIGRAM, BID
     Route: 048

REACTIONS (45)
  - Death [Fatal]
  - Sudden death [Fatal]
  - Benign neoplasm [Fatal]
  - Neoplasm malignant [Fatal]
  - Squamous cell carcinoma of the cervix [Fatal]
  - Cyst [Fatal]
  - Polyp [Fatal]
  - Disease progression [Fatal]
  - Small intestinal perforation [Fatal]
  - Blood creatinine increased [Unknown]
  - Thrombocytopenia [Unknown]
  - Anaemia [Unknown]
  - Infection [Unknown]
  - Infestation [Unknown]
  - Ascites [Unknown]
  - Dyspnoea [Unknown]
  - Leukopenia [Unknown]
  - Neutropenia [Unknown]
  - Investigation abnormal [Unknown]
  - Poisoning [Unknown]
  - Nervous system disorder [Unknown]
  - Reproductive tract disorder [Unknown]
  - Breast disorder [Unknown]
  - Musculoskeletal disorder [Unknown]
  - Respiratory disorder [Unknown]
  - Metabolic disorder [Unknown]
  - Mediastinal disorder [Unknown]
  - Angiopathy [Unknown]
  - Nutritional condition abnormal [Unknown]
  - Peripheral sensory neuropathy [Unknown]
  - Connective tissue disorder [Unknown]
  - Musculoskeletal disorder [Unknown]
  - Inner ear disorder [Unknown]
  - Endocrine disorder [Unknown]
  - Eye disorder [Unknown]
  - Cardiac disorder [Unknown]
  - Urinary tract disorder [Unknown]
  - Injury [Unknown]
  - Renal disorder [Unknown]
  - Mental disorder [Unknown]
  - Skin disorder [Unknown]
  - Therapy partial responder [Unknown]
  - Gastrointestinal disorder [Unknown]
  - Administration site reaction [Unknown]
  - Adverse event [Unknown]
